FAERS Safety Report 6582581-5 (Version None)
Quarter: 2010Q1

REPORT INFORMATION
  Report Type: 
  Country: None (occurrence: None)
  Receive Date: 20100216
  Receipt Date: 20100203
  Transmission Date: 20100710
  Serious: Yes (Hospitalization, Other)
  Sender: FDA-Public Use
  Company Number: TR-MEDIMMUNE-MEDI-0010492

PATIENT
  Age: 4 Month
  Sex: Female
  Weight: 3 kg

DRUGS (1)
  1. SYNAGIS [Suspect]
     Route: 030
     Dates: start: 20100122, end: 20100122

REACTIONS (3)
  - CYANOSIS [None]
  - DYSPNOEA [None]
  - RETCHING [None]
